FAERS Safety Report 8601496-1 (Version None)
Quarter: 2012Q3

REPORT INFORMATION
  Report Type: 
  Country: None (occurrence: None)
  Receive Date: 20120817
  Receipt Date: 20111121
  Transmission Date: 20120928
  Serious: Yes (Hospitalization)
  Sender: FDA-Public Use
  Company Number: US-BRISTOL-MYERS SQUIBB COMPANY-16147563

PATIENT
  Age: 62 Year
  Sex: Female
  Weight: 146 kg

DRUGS (13)
  1. ALLOPURINOL [Concomitant]
  2. ALLOPURINOL [Concomitant]
     Indication: BLOOD URIC ACID
  3. RENAGEL [Concomitant]
  4. SPRYCEL [Suspect]
     Indication: CHRONIC MYELOID LEUKAEMIA
     Dosage: INTERRUPTED.THEN RESTART WITH 20MG.60MG
     Route: 048
     Dates: start: 20111005
  5. ZAROXOLYN [Concomitant]
  6. PREDNISONE TAB [Concomitant]
  7. BUTRANS [Concomitant]
     Indication: ARTHRITIS
     Dosage: PATCH
  8. RELAFEN [Concomitant]
  9. LASIX [Concomitant]
  10. CARDIZEM [Concomitant]
     Indication: CARDIAC DISORDER
  11. ALEVE [Concomitant]
  12. POTASSIUM CHLORIDE [Concomitant]
  13. TRAMADOL HCL [Concomitant]
     Indication: PAIN

REACTIONS (5)
  - OEDEMA PERIPHERAL [None]
  - PULMONARY OEDEMA [None]
  - DYSPNOEA [None]
  - DRY MOUTH [None]
  - HEADACHE [None]
